FAERS Safety Report 17427182 (Version 5)
Quarter: 2020Q2

REPORT INFORMATION
  Report Type: Report from Study
  Country: US (occurrence: US)
  Receive Date: 20200218
  Receipt Date: 20200513
  Transmission Date: 20200713
  Serious: No
  Sender: FDA-Public Use
  Company Number: NVSC2020US042846

PATIENT
  Sex: Female

DRUGS (2)
  1. PIQRAY [Suspect]
     Active Substance: ALPELISIB
     Dosage: 200 MG
     Route: 048
  2. PIQRAY [Suspect]
     Active Substance: ALPELISIB
     Indication: PRODUCT USED FOR UNKNOWN INDICATION
     Dosage: 250 MG
     Route: 048

REACTIONS (8)
  - Blood glucose increased [Unknown]
  - Hypersensitivity [Unknown]
  - Migraine [Unknown]
  - Pruritus [Recovering/Resolving]
  - Pain in jaw [Unknown]
  - Headache [Unknown]
  - Drug intolerance [Unknown]
  - Rash [Recovering/Resolving]
